FAERS Safety Report 14225188 (Version 1)
Quarter: 2017Q4

REPORT INFORMATION
  Report Type: Spontaneous
  Country: US (occurrence: None)
  Receive Date: 20171122
  Receipt Date: 20171122
  Transmission Date: 20180321
  Serious: Yes (Hospitalization)
  Sender: FDA-Public Use
  Company Number: None

PATIENT
  Sex: Female

DRUGS (5)
  1. METOPROLOL. [Concomitant]
     Active Substance: METOPROLOL
  2. ENBREL [Suspect]
     Active Substance: ETANERCEPT
     Indication: PSORIATIC ARTHROPATHY
     Route: 058
  3. GENTAMICIN. [Concomitant]
     Active Substance: GENTAMICIN
  4. SUMATRIPTAN. [Concomitant]
     Active Substance: SUMATRIPTAN
  5. OXYCODO/APAP [Concomitant]

REACTIONS (3)
  - Ileostomy [None]
  - Condition aggravated [None]
  - Therapy cessation [None]

NARRATIVE: CASE EVENT DATE: 2017
